FAERS Safety Report 9090858 (Version 2)
Quarter: 2013Q1

REPORT INFORMATION
  Report Type: Spontaneous
  Country: US (occurrence: US)
  Receive Date: 20130201
  Receipt Date: 20130218
  Transmission Date: 20140127
  Serious: No
  Sender: FDA-Public Use
  Company Number: US-009507513-1301USA014624

PATIENT
  Age: 13 Year
  Sex: Female

DRUGS (1)
  1. IMPLANON [Suspect]
     Indication: CONTRACEPTION
     Dosage: 1 DF, EVERY 3 YEARS
     Route: 059
     Dates: start: 20120305

REACTIONS (5)
  - Menstruation irregular [Unknown]
  - Menorrhagia [Unknown]
  - Breast pain [Unknown]
  - Headache [Unknown]
  - Weight increased [Unknown]
